FAERS Safety Report 14542772 (Version 1)
Quarter: 2018Q1

REPORT INFORMATION
  Report Type: Spontaneous
  Country: US (occurrence: US)
  Receive Date: 20180216
  Receipt Date: 20180216
  Transmission Date: 20180509
  Serious: Yes (Hospitalization, Disabling, Other)
  Sender: FDA-Public Use
  Company Number: US-OTSUKA-DJ201408315

PATIENT

DRUGS (1)
  1. ABILIFY [Suspect]
     Active Substance: ARIPIPRAZOLE
     Indication: PRODUCT USED FOR UNKNOWN INDICATION
     Route: 048

REACTIONS (9)
  - Malaise [Unknown]
  - Vision blurred [Unknown]
  - Thirst [Unknown]
  - Dyspnoea [Unknown]
  - Restlessness [Unknown]
  - Abdominal pain upper [Unknown]
  - Nightmare [Unknown]
  - Nephrolithiasis [Unknown]
  - Constipation [Unknown]

NARRATIVE: CASE EVENT DATE: 201411
